FAERS Safety Report 8064624-5 (Version None)
Quarter: 2012Q1

REPORT INFORMATION
  Report Type: 
  Country: None (occurrence: None)
  Receive Date: 20120123
  Receipt Date: 20120117
  Transmission Date: 20120608
  Serious: Yes (Other)
  Sender: FDA-Public Use
  Company Number: US-ASTRAZENECA-2011SE59281

PATIENT
  Age: 74 Year
  Sex: Female
  Weight: 75.3 kg

DRUGS (21)
  1. LOVASTATIN [Concomitant]
  2. ACETAMINOPHEN [Concomitant]
     Indication: ARTHRALGIA
  3. SEROQUEL [Suspect]
     Route: 048
     Dates: start: 20070529
  4. LOVAZA [Concomitant]
  5. SYNTHROID [Concomitant]
  6. SEROQUEL [Suspect]
     Route: 048
  7. SEROQUEL [Suspect]
     Dosage: 50 MG, ONE IN THE MORNING AND TWO IN THE EVENING FOR TWO WEEKS AND THEN 50 MG BID
     Route: 048
  8. MIDODRINE HYDROCHLORIDE [Concomitant]
     Indication: HYPOTENSION
  9. ADVAIR DISKUS 100/50 [Concomitant]
     Dosage: 250/50 MCG, TWICE A DAY.
  10. FLONASE [Concomitant]
  11. EFFEXOR XR [Concomitant]
     Route: 048
  12. MIDODRINE HYDROCHLORIDE [Concomitant]
  13. NAMENDA [Concomitant]
  14. VITAMIN D [Concomitant]
  15. ACIPHEX [Concomitant]
  16. ALPRAZOLAM [Concomitant]
  17. ARICEPT [Concomitant]
  18. SANCTURA XR [Concomitant]
  19. SINGULAIR [Concomitant]
  20. CALCIUM [Concomitant]
  21. GLUCOSAMINE CHONDROITIN COMPLX [Concomitant]
     Dosage: DAILY

REACTIONS (10)
  - RENAL FAILURE [None]
  - ANXIETY [None]
  - OFF LABEL USE [None]
  - HEADACHE [None]
  - ASTHENIA [None]
  - ASTHMA [None]
  - NEOPLASM MALIGNANT [None]
  - FALL [None]
  - VERTIGO [None]
  - DIZZINESS [None]
